FAERS Safety Report 4862085-8 (Version None)
Quarter: 2005Q4

REPORT INFORMATION
  Report Type: 
  Country: None (occurrence: None)
  Receive Date: 20051130
  Receipt Date: 20050103
  Transmission Date: 20060501
  Serious: Yes (Hospitalization)
  Sender: FDA-Public Use
  Company Number: PHEH2004US12949

PATIENT
  Age: 45 Year
  Sex: Male
  Weight: 199 kg

DRUGS (2)
  1. LAMISIL [Suspect]
     Indication: NAIL TINEA
     Dosage: 250 MG, QD, ORAL
     Route: 048
     Dates: start: 20041001
  2. LIPITOR [Concomitant]

REACTIONS (1)
  - STEVENS-JOHNSON SYNDROME [None]
